FAERS Safety Report 4372031-1 (Version None)
Quarter: 2004Q2

REPORT INFORMATION
  Report Type: 
  Country: None (occurrence: None)
  Receive Date: 20040601
  Receipt Date: 20040520
  Transmission Date: 20050107
  Serious: Yes (Hospitalization)
  Sender: FDA-Public Use
  Company Number: STA-AE-04-MTX-206

PATIENT
  Age: 76 Year
  Sex: Female

DRUGS (8)
  1. METHOTREXATE SODIUM [Suspect]
     Indication: RHEUMATOID ARTHRITIS
     Dosage: 20 MG 1X PER 1 WK, ORAL
     Route: 048
     Dates: start: 19990401
  2. PLAQUENIL [Suspect]
     Dosage: 200 MG 1X PER 1 DAY, ORAL
     Route: 048
     Dates: start: 19990901
  3. PREDNISONE TAB [Concomitant]
  4. FOSAMAX [Concomitant]
  5. ASPIRIN [Concomitant]
  6. CACLIUM (CALCIUM) [Concomitant]
  7. POTASSIUM (POTASSIUM) [Concomitant]
  8. ATIVAN [Concomitant]

REACTIONS (1)
  - TRANSIENT ISCHAEMIC ATTACK [None]
